FAERS Safety Report 14235872 (Version 1)
Quarter: 2017Q4

REPORT INFORMATION
  Report Type: Spontaneous
  Country: TR (occurrence: TR)
  Receive Date: 20171129
  Receipt Date: 20171129
  Transmission Date: 20180321
  Serious: Yes (Hospitalization, Other)
  Sender: FDA-Public Use
  Company Number: TR-ACCORD-061487

PATIENT
  Sex: Female

DRUGS (4)
  1. LITHIUM. [Concomitant]
     Active Substance: LITHIUM
     Indication: MANIA
     Dates: start: 2011, end: 2016
  2. CLOZAPINE. [Suspect]
     Active Substance: CLOZAPINE
     Indication: TARDIVE DYSKINESIA
     Dates: start: 2016
  3. TOCOPHEROL [Concomitant]
     Active Substance: TOCOPHEROL
     Dates: start: 2016
  4. DIAZEPAM. [Concomitant]
     Active Substance: DIAZEPAM
     Indication: TARDIVE DYSKINESIA
     Dates: start: 2016, end: 2016

REACTIONS (2)
  - Enuresis [Recovered/Resolved]
  - Urinary incontinence [Recovering/Resolving]

NARRATIVE: CASE EVENT DATE: 2016
